FAERS Safety Report 4721332-3 (Version None)
Quarter: 2005Q3

REPORT INFORMATION
  Report Type: 
  Country: None (occurrence: None)
  Receive Date: 20050721
  Receipt Date: 20040628
  Transmission Date: 20060218
  Serious: No
  Sender: FDA-Public Use
  Company Number: US-BRISTOL-MYERS SQUIBB COMPANY-12627592

PATIENT
  Age: 76 Year
  Sex: Female
  Weight: 57 kg

DRUGS (10)
  1. COUMADIN [Suspect]
     Indication: ATRIAL FIBRILLATION
     Dates: end: 20040301
  2. TENORMIN [Concomitant]
     Dosage: ON FOR MANY YEARS
  3. ASPIRIN [Concomitant]
     Dosage: TAKING 81 MG SINCE 1998, INTERMITTENTLY BEFORE THAT
     Dates: start: 19980101
  4. AMIODARONE [Concomitant]
  5. CLARINEX [Concomitant]
     Dosage: TAKING FOR MANY YEARS
  6. VALIUM [Concomitant]
  7. VITAMIN B6 [Concomitant]
     Dosage: TAKING OCCASIONALLY FOR ABOUT 2 YEARS
  8. FOLIC ACID [Concomitant]
     Dosage: OCCASIONALLY FOR ABOUT 2 YEARS
  9. ESTER-C [Concomitant]
     Dosage: TAKING FOR MANY YEARS
  10. LESCOL [Concomitant]
     Dates: start: 20040601

REACTIONS (2)
  - FALL [None]
  - HAEMORRHAGE [None]
